FAERS Safety Report 10477979 (Version 1)
Quarter: 2014Q3

REPORT INFORMATION
  Report Type: Spontaneous
  Country: US (occurrence: None)
  Receive Date: 20140925
  Receipt Date: 20140925
  Transmission Date: 20150326
  Serious: Yes (Life-Threatening, Hospitalization, Disabling)
  Sender: FDA-Public Use
  Company Number: None

PATIENT
  Age: 63 Year
  Sex: Female
  Weight: 63.5 kg

DRUGS (24)
  1. FISH OIL [Concomitant]
     Active Substance: FISH OIL
  2. VITAMIN B COMPLEX [Concomitant]
     Active Substance: CYANOCOBALAMIN\DEXPANTHENOL\NIACINAMIDE\PYRIDOXINE HYDROCHLORIDE\RIBOFLAVIN 5^-PHOSPHATE SODIUM\THIAMINE HYDROCHLORIDE\VITAMIN B COMPLEX
  3. GABAPENTIN. [Concomitant]
     Active Substance: GABAPENTIN
  4. LEVOTHYROXINE [Concomitant]
     Active Substance: LEVOTHYROXINE
  5. VITAMIN E [Concomitant]
     Active Substance: .ALPHA.-TOCOPHEROL
  6. STOOL SOFTENER [Concomitant]
     Active Substance: DOCUSATE CALCIUM
  7. MAGNESIUM [Concomitant]
     Active Substance: MAGNESIUM
  8. BENZTROPINE [Concomitant]
     Active Substance: BENZTROPINE
  9. KLONOPIN [Suspect]
     Active Substance: CLONAZEPAM
  10. CLONAZEPAM. [Concomitant]
     Active Substance: CLONAZEPAM
  11. LISINOPRIL. [Concomitant]
     Active Substance: LISINOPRIL
  12. TRAMADOL [Concomitant]
     Active Substance: TRAMADOL
  13. VENLAFAXINE [Suspect]
     Active Substance: VENLAFAXINE HYDROCHLORIDE
  14. DICYCLOMINE (BENTYL) [Concomitant]
  15. CALCIUM [Concomitant]
     Active Substance: CALCIUM
  16. SERTRALINE [Suspect]
     Active Substance: SERTRALINE HYDROCHLORIDE
  17. DONEPEZIL [Concomitant]
     Active Substance: DONEPEZIL
  18. NAPROXEN. [Concomitant]
     Active Substance: NAPROXEN
  19. NAPROXEN. [Concomitant]
     Active Substance: NAPROXEN
  20. DONEPEZIL [Concomitant]
     Active Substance: DONEPEZIL
  21. MELATONIN [Concomitant]
     Active Substance: MELATONIN
  22. EFFEXOR [Suspect]
     Active Substance: VENLAFAXINE HYDROCHLORIDE
     Indication: DEPRESSION
     Route: 048
     Dates: start: 2004, end: 2005
  23. PRAVASTATIN [Concomitant]
     Active Substance: PRAVASTATIN\PRAVASTATIN SODIUM
  24. ASPIRIN. [Concomitant]
     Active Substance: ASPIRIN

REACTIONS (3)
  - Tongue disorder [None]
  - Cerebrovascular accident [None]
  - Dyskinesia [None]

NARRATIVE: CASE EVENT DATE: 201102
